FAERS Safety Report 25511055 (Version 1)
Quarter: 2025Q3

REPORT INFORMATION
  Report Type: Spontaneous
  Country: US (occurrence: US)
  Receive Date: 20250703
  Receipt Date: 20250703
  Transmission Date: 20251020
  Serious: No
  Sender: RADIUS PHARM
  Company Number: US-RADIUS HEALTH INC.-2024US003934

PATIENT
  Age: 63 Year
  Sex: Female

DRUGS (1)
  1. TYMLOS [Suspect]
     Active Substance: ABALOPARATIDE
     Indication: Senile osteoporosis
     Route: 058
     Dates: start: 202405

REACTIONS (11)
  - Fatigue [Unknown]
  - Intentional dose omission [Unknown]
  - Headache [Recovered/Resolved]
  - Chills [Unknown]
  - Feeling cold [Unknown]
  - Arthralgia [Unknown]
  - Dizziness [Unknown]
  - Tremor [Unknown]
  - Temperature intolerance [Unknown]
  - Nausea [Unknown]
  - Pain [Recovered/Resolved]

NARRATIVE: CASE EVENT DATE: 20240531
